FAERS Safety Report 19258288 (Version 4)
Quarter: 2021Q3

REPORT INFORMATION
  Report Type: Spontaneous
  Country: US (occurrence: US)
  Receive Date: 20210514
  Receipt Date: 20210712
  Transmission Date: 20211014
  Serious: No
  Sender: FDA-Public Use
  Company Number: US-ASTRAZENECA-2021A423152

PATIENT
  Age: 664 Month
  Sex: Female
  Weight: 115.7 kg

DRUGS (3)
  1. FASENRA [Suspect]
     Active Substance: BENRALIZUMAB
     Indication: ASTHMA
     Route: 058
     Dates: start: 20210416
  2. FASENRA [Suspect]
     Active Substance: BENRALIZUMAB
     Indication: ASTHMA
     Route: 058
     Dates: start: 2020, end: 20210416
  3. FASENRA [Suspect]
     Active Substance: BENRALIZUMAB
     Indication: ASTHMA
     Route: 058
     Dates: start: 202012, end: 20210416

REACTIONS (8)
  - Incorrect dose administered by device [Unknown]
  - Device leakage [Unknown]
  - Product dose omission issue [Recovered/Resolved]
  - Rhinorrhoea [Not Recovered/Not Resolved]
  - Needle issue [Unknown]
  - Lacrimation increased [Not Recovered/Not Resolved]
  - Insurance issue [Unknown]
  - Dyspnoea [Not Recovered/Not Resolved]

NARRATIVE: CASE EVENT DATE: 202011
